FAERS Safety Report 11410809 (Version 1)
Quarter: 2015Q3

REPORT INFORMATION
  Report Type: Spontaneous
  Country: US (occurrence: US)
  Receive Date: 20150821
  Receipt Date: 20150821
  Transmission Date: 20151125
  Serious: No
  Sender: FDA-Public Use
  Company Number: US-ELI_LILLY_AND_COMPANY-US200910001092

PATIENT
  Age: 73 Year
  Sex: Female

DRUGS (8)
  1. LEXAPRO [Concomitant]
     Active Substance: ESCITALOPRAM OXALATE
  2. LANTUS [Concomitant]
     Active Substance: INSULIN GLARGINE
     Indication: TYPE 2 DIABETES MELLITUS
     Dosage: 30 U, EACH EVENING
     Dates: start: 2001, end: 20090918
  3. LANTUS [Concomitant]
     Active Substance: INSULIN GLARGINE
     Dosage: 24 U, 2/D
     Dates: start: 20090918
  4. CARVEDILOL. [Concomitant]
     Active Substance: CARVEDILOL
  5. AMBIEN [Concomitant]
     Active Substance: ZOLPIDEM TARTRATE
  6. HUMULIN R [Suspect]
     Active Substance: INSULIN HUMAN
     Dosage: UNK, 4/D
     Route: 058
     Dates: end: 20090918
  7. ASPIRIN. [Concomitant]
     Active Substance: ASPIRIN
  8. AMIODARONE [Concomitant]
     Active Substance: AMIODARONE

REACTIONS (3)
  - Blood glucose decreased [Recovered/Resolved]
  - Tremor [Recovered/Resolved]
  - Xanthopsia [Recovered/Resolved]

NARRATIVE: CASE EVENT DATE: 200909
